FAERS Safety Report 5238956-X (Version None)
Quarter: 2007Q1

REPORT INFORMATION
  Report Type: 
  Country: None (occurrence: None)
  Receive Date: 20070215
  Receipt Date: 20070212
  Transmission Date: 20070707
  Serious: Yes (Hospitalization)
  Sender: FDA-Public Use
  Company Number: US-AMGEN-US210913

PATIENT
  Sex: Male

DRUGS (8)
  1. EPOGEN [Suspect]
     Indication: DIALYSIS
     Route: 058
     Dates: start: 20040301
  2. LEXAPRO [Concomitant]
  3. NORVASC [Concomitant]
  4. STARLIX [Concomitant]
  5. IRON [Concomitant]
  6. ENALAPRIL MALEATE [Concomitant]
  7. NEPHRO-VITE [Concomitant]
  8. RENAGEL [Concomitant]
     Dates: start: 20070101

REACTIONS (2)
  - AZOTAEMIA [None]
  - STOMACH DISCOMFORT [None]
